FAERS Safety Report 5984073-0 (Version None)
Quarter: 2008Q4

REPORT INFORMATION
  Report Type: 
  Country: None (occurrence: None)
  Receive Date: 20081208
  Receipt Date: 20081127
  Transmission Date: 20090506
  Serious: Yes (Hospitalization)
  Sender: FDA-Public Use
  Company Number: GB-ELI_LILLY_AND_COMPANY-GB200810004418

PATIENT
  Sex: Female
  Weight: 70 kg

DRUGS (6)
  1. FORTEO [Suspect]
     Indication: OSTEOPOROSIS
     Dosage: 20 UG, DAILY (1/D)
     Route: 058
     Dates: start: 20081008
  2. ASPIRIN [Concomitant]
     Indication: PROPHYLAXIS
     Dosage: 75 MG, UNKNOWN
     Route: 048
  3. MORPHINE SULFATE [Concomitant]
     Indication: PAIN
     Dosage: 120 MG, DAILY (1/D)
     Route: 048
     Dates: start: 20081001
  4. ORAMORPH SR [Concomitant]
     Indication: PAIN
     Dosage: 40 ML, AS NEEDED
     Route: 048
     Dates: start: 20081001
  5. LANSOPRAZOLE [Concomitant]
     Indication: DYSPEPSIA
     Dosage: 30 MG, UNKNOWN
     Route: 048
  6. ATORVASTATIN CALCIUM [Concomitant]
     Indication: HYPERTENSION
     Dosage: 20 MG, UNKNOWN
     Route: 048

REACTIONS (2)
  - BACK PAIN [None]
  - DIZZINESS [None]
